FAERS Safety Report 25433423 (Version 2)
Quarter: 2025Q2

REPORT INFORMATION
  Report Type: Report from Study
  Country: US (occurrence: US)
  Receive Date: 20250613
  Receipt Date: 20250619
  Transmission Date: 20250716
  Serious: Yes (Hospitalization, Disabling, Other)
  Sender: ROCHE
  Company Number: US-ROCHE-10000303817

PATIENT
  Sex: Female

DRUGS (3)
  1. RITUXAN [Suspect]
     Active Substance: RITUXIMAB
     Indication: Neuromyelitis optica spectrum disorder
     Route: 065
  2. CELLCEPT [Suspect]
     Active Substance: MYCOPHENOLATE MOFETIL
     Indication: Neuromyelitis optica spectrum disorder
     Route: 065
     Dates: start: 2016, end: 2018
  3. ENSPRYNG [Suspect]
     Active Substance: SATRALIZUMAB-MWGE
     Indication: Product used for unknown indication
     Route: 065

REACTIONS (8)
  - Pneumonia [Unknown]
  - Cerebral haemorrhage [Unknown]
  - Blood immunoglobulin G decreased [Unknown]
  - Blindness [Recovered/Resolved]
  - Hemiplegia [Recovered/Resolved]
  - Neuromyelitis optica spectrum disorder [Unknown]
  - Immunodeficiency [Not Recovered/Not Resolved]
  - Off label use [Unknown]
